FAERS Safety Report 20561133 (Version 1)
Quarter: 2022Q1

REPORT INFORMATION
  Report Type: Spontaneous
  Country: US (occurrence: None)
  Receive Date: 20220307
  Receipt Date: 20220307
  Transmission Date: 20220424
  Serious: Yes (Hospitalization)
  Sender: FDA-Public Use
  Company Number: None

PATIENT
  Age: 55 Year
  Sex: Female
  Weight: 68 kg

DRUGS (3)
  1. PEMBROLIZUMAB [Suspect]
     Active Substance: PEMBROLIZUMAB
     Dates: start: 20211222
  2. CARBOPLATIN [Suspect]
     Active Substance: CARBOPLATIN
  3. GEMCITABINE [Suspect]
     Active Substance: GEMCITABINE

REACTIONS (5)
  - Fall [None]
  - Head injury [None]
  - Limb injury [None]
  - Skin laceration [None]
  - Pain in extremity [None]

NARRATIVE: CASE EVENT DATE: 20220303
